FAERS Safety Report 8577635-8 (Version None)
Quarter: 2012Q3

REPORT INFORMATION
  Report Type: 
  Country: None (occurrence: None)
  Receive Date: 20120807
  Receipt Date: 20120801
  Transmission Date: 20120928
  Serious: Yes (Other)
  Sender: FDA-Public Use
  Company Number: US-PFIZER INC-2012165812

PATIENT
  Age: 59 Year
  Sex: Female
  Weight: 84.4 kg

DRUGS (7)
  1. ELMIRON [Concomitant]
     Indication: BLADDER DISORDER
     Dosage: 100 MG, 2X/DAY
     Route: 048
  2. ELMIRON [Concomitant]
     Indication: CYSTITIS INTERSTITIAL
  3. CIALIS [Concomitant]
     Dosage: 5 MG, DAILY
     Route: 048
  4. VIAGRA [Suspect]
     Indication: BLADDER PROLAPSE
     Dosage: 100 MG, 1X/DAY
     Route: 048
  5. VESICARE [Concomitant]
     Indication: MICTURITION DISORDER
     Dosage: 5 MG, UNK Q.H.S.
     Route: 048
  6. VIAGRA [Suspect]
     Indication: BLADDER DISORDER
     Dosage: 100MG TABLETS TO BE CUT IN FOURTHS AND TAKEN AS NEEDED
     Route: 048
  7. VESICARE [Concomitant]
     Indication: CYSTITIS INTERSTITIAL

REACTIONS (11)
  - HAEMATURIA [None]
  - NOCTURIA [None]
  - DYSURIA [None]
  - URGE INCONTINENCE [None]
  - PYURIA [None]
  - OVARIAN FAILURE [None]
  - OFF LABEL USE [None]
  - STRESS URINARY INCONTINENCE [None]
  - POLLAKIURIA [None]
  - BREAST CANCER FEMALE [None]
  - URINARY TRACT INFECTION [None]
